FAERS Safety Report 16052199 (Version 1)
Quarter: 2019Q1

REPORT INFORMATION
  Report Type: Report from Study
  Country: None (occurrence: DO)
  Receive Date: 20190308
  Receipt Date: 20190308
  Transmission Date: 20190418
  Serious: Yes (Other)
  Sender: FDA-Public Use
  Company Number: DO-ABBVIE-19K-279-2696811-00

PATIENT
  Age: 38 Year
  Sex: Female

DRUGS (1)
  1. HUMIRA [Suspect]
     Active Substance: ADALIMUMAB
     Indication: CROHN^S DISEASE
     Route: 058
     Dates: start: 20180808

REACTIONS (7)
  - Arteriovenous fistula site haemorrhage [Recovering/Resolving]
  - Anaemia [Recovering/Resolving]
  - Amoebic dysentery [Recovering/Resolving]
  - Asthenia [Recovering/Resolving]
  - Infected fistula [Recovering/Resolving]
  - Malaise [Recovering/Resolving]
  - Anal fistula [Recovering/Resolving]

NARRATIVE: CASE EVENT DATE: 20190225
